FAERS Safety Report 9246356 (Version 6)
Quarter: 2014Q2

REPORT INFORMATION
  Report Type: Report from Study
  Country: FR (occurrence: FR)
  Receive Date: 20130422
  Receipt Date: 20140607
  Transmission Date: 20141212
  Serious: Yes (Hospitalization)
  Sender: FDA-Public Use
  Company Number: PHHY2013FR005621

PATIENT
  Age: 60 Year
  Sex: Female
  Weight: 79 kg

DRUGS (8)
  1. AMN107 [Suspect]
     Indication: CHRONIC MYELOID LEUKAEMIA
     Dosage: 150 MG, BID
     Route: 048
     Dates: start: 20121228
  2. AMN107 [Suspect]
     Dosage: 300 MG, BID
     Route: 048
     Dates: end: 20130105
  3. AMN107 [Suspect]
     Dates: start: 20130128
  4. XYZALL [Concomitant]
  5. INEXIUM//ESOMEPRAZOLE SODIUM [Concomitant]
     Indication: GASTROOESOPHAGEAL REFLUX DISEASE
     Dosage: 40 MG, QD
  6. LEVOTHYROX [Concomitant]
     Indication: HYPOTHYROIDISM
     Dosage: 37.5 MG, QD
     Route: 048
  7. EFFEXOR [Concomitant]
     Indication: ANXIETY
     Dosage: 37.5 MG, QD
     Route: 048
  8. CRESTOR [Concomitant]
     Indication: HYPERCHOLESTEROLAEMIA
     Dosage: 10 MG, QD

REACTIONS (9)
  - Urticaria [Recovered/Resolved]
  - Pruritus [Recovered/Resolved]
  - Abdominal distension [Unknown]
  - Asthenia [Unknown]
  - Pyrexia [Unknown]
  - Hyperkeratosis [Not Recovered/Not Resolved]
  - Dyspnoea [Recovered/Resolved]
  - Weight increased [Recovered/Resolved]
  - Oedema [Recovered/Resolved]
